FAERS Safety Report 16844521 (Version 1)
Quarter: 2019Q3

REPORT INFORMATION
  Report Type: Spontaneous
  Country: US (occurrence: US)
  Receive Date: 20190924
  Receipt Date: 20190924
  Transmission Date: 20191005
  Serious: Yes (Hospitalization, Other)
  Sender: FDA-Public Use
  Company Number: US-SA-2019SA261002

PATIENT
  Age: 77 Year
  Sex: Female

DRUGS (1)
  1. TOUJEO [Suspect]
     Active Substance: INSULIN GLARGINE
     Indication: TYPE 2 DIABETES MELLITUS
     Dosage: 80 U, HS
     Route: 065

REACTIONS (6)
  - Myocardial infarction [Unknown]
  - Irritable bowel syndrome [Unknown]
  - Weight decreased [Unknown]
  - Abdominal discomfort [Unknown]
  - Diarrhoea [Unknown]
  - Hospitalisation [Unknown]

NARRATIVE: CASE EVENT DATE: 20190306
